FAERS Safety Report 8352590-4 (Version None)
Quarter: 2012Q2

REPORT INFORMATION
  Report Type: 
  Country: None (occurrence: None)
  Receive Date: 20120511
  Receipt Date: 20120415
  Transmission Date: 20120825
  Serious: No
  Sender: FDA-Public Use
  Company Number: US-COVIDIEN/TYCO HEALTHCARE/MALLINCKRODT-T201201451

PATIENT
  Sex: Male
  Weight: 99.773 kg

DRUGS (4)
  1. NORCO [Concomitant]
     Indication: BREAKTHROUGH PAIN
     Dosage: 10/325 MG, 2-3 TABS, TID
     Route: 048
  2. FENTANYL CITRATE [Concomitant]
     Indication: PAIN
     Dosage: UNK
     Route: 062
  3. FENTANYL-100 [Suspect]
     Indication: BACK PAIN
     Dosage: 50 UG/HR, Q 48 HRS
     Route: 062
     Dates: start: 20120301, end: 20120401
  4. TRAMADOL HYDROCHLORIDE [Concomitant]
     Indication: PAIN
     Dosage: 200 MG, BID
     Route: 048

REACTIONS (2)
  - DRUG INEFFECTIVE [None]
  - INAPPROPRIATE SCHEDULE OF DRUG ADMINISTRATION [None]
